FAERS Safety Report 4891973-1 (Version None)
Quarter: 2006Q1

REPORT INFORMATION
  Report Type: 
  Country: None (occurrence: None)
  Receive Date: 20060124
  Receipt Date: 20060124
  Transmission Date: 20060701
  Serious: No
  Sender: FDA-Public Use
  Company Number: None

PATIENT
  Sex: Male
  Weight: 76 kg

DRUGS (15)
  1. ATGAM [Suspect]
     Indication: LUNG TRANSPLANT REJECTION
     Dosage: 400 MG IV DAILY
     Route: 042
     Dates: start: 20050627
  2. ASPIRIN [Concomitant]
  3. CALATONIN [Concomitant]
  4. CALCIUM CARBONATE [Concomitant]
  5. INSULIN [Concomitant]
  6. ISOSORBIDE MONONITRATE [Concomitant]
  7. ITRACONAZOLE [Concomitant]
  8. LANSOPRAZOLE [Concomitant]
  9. MAGNESIUM OXIDE [Concomitant]
  10. HEPARIN [Concomitant]
  11. METHOPROLOL [Concomitant]
  12. MYCOPHENOLATE [Concomitant]
  13. NYSTATIN [Concomitant]
  14. TACROLIMUS [Concomitant]
  15. VALACYCLOVIR HCL [Concomitant]

REACTIONS (4)
  - DYSPNOEA [None]
  - HYPOTENSION [None]
  - INFUSION RELATED REACTION [None]
  - URTICARIA [None]
